FAERS Safety Report 21285557 (Version 1)
Quarter: 2022Q3

REPORT INFORMATION
  Report Type: Spontaneous
  Country: US (occurrence: None)
  Receive Date: 20220901
  Receipt Date: 20220901
  Transmission Date: 20221027
  Serious: No
  Sender: FDA-Public Use
  Company Number: None

PATIENT
  Sex: Male

DRUGS (1)
  1. ABIRATERONE [Suspect]
     Active Substance: ABIRATERONE
     Dosage: 1000MG DAILY ORAL
     Route: 048

REACTIONS (6)
  - Hypoaesthesia [None]
  - Peripheral swelling [None]
  - Decubitus ulcer [None]
  - Pain [None]
  - Wound [None]
  - Emotional disorder [None]
